FAERS Safety Report 24840676 (Version 1)
Quarter: 2025Q1

REPORT INFORMATION
  Report Type: Spontaneous
  Country: IN (occurrence: IN)
  Receive Date: 20250114
  Receipt Date: 20250114
  Transmission Date: 20250409
  Serious: Yes (Other)
  Sender: PFIZER
  Company Number: IN-PFIZER INC-PV202300142534

PATIENT
  Age: 46 Year
  Sex: Male

DRUGS (1)
  1. LORLATINIB [Suspect]
     Active Substance: LORLATINIB
     Indication: Non-small cell lung cancer
     Dosage: 100 MG, 1X/DAY (X 2 MONTHS)
     Route: 048
     Dates: start: 20230403

REACTIONS (11)
  - Cholecystitis [Unknown]
  - Cholelithiasis [Unknown]
  - Dyspnoea [Unknown]
  - Adjustment disorder with depressed mood [Unknown]
  - Neoplasm progression [Unknown]
  - Breast mass [Unknown]
  - Abdominal pain [Recovered/Resolved]
  - Lipids abnormal [Unknown]
  - Pyrexia [Recovered/Resolved]
  - Viral upper respiratory tract infection [Recovering/Resolving]
  - Cough [Recovering/Resolving]
